FAERS Safety Report 25941321 (Version 2)
Quarter: 2025Q4

REPORT INFORMATION
  Report Type: Report from Study
  Country: US (occurrence: US)
  Receive Date: 20251020
  Receipt Date: 20251106
  Transmission Date: 20260117
  Serious: Yes (Other)
  Sender: OTSUKA
  Company Number: US-MMM-Otsuka-VAETY2H4

PATIENT
  Age: 62 Year
  Sex: Male
  Weight: 130.16 kg

DRUGS (2)
  1. TOLVAPTAN [Suspect]
     Active Substance: TOLVAPTAN
     Indication: Congenital cystic kidney disease
     Dosage: 45 MG, QD
     Dates: start: 20250929, end: 20251016
  2. TOLVAPTAN [Suspect]
     Active Substance: TOLVAPTAN
     Indication: Renal cyst
     Dosage: 15 MG, QD
     Dates: start: 20250929, end: 20251016

REACTIONS (5)
  - Renal impairment [Not Recovered/Not Resolved]
  - Skin discolouration [Not Recovered/Not Resolved]
  - Blood sodium increased [Not Recovered/Not Resolved]
  - Thirst [Not Recovered/Not Resolved]
  - Polyuria [Not Recovered/Not Resolved]

NARRATIVE: CASE EVENT DATE: 20250929
